FAERS Safety Report 5463685-7 (Version None)
Quarter: 2007Q3

REPORT INFORMATION
  Report Type: 
  Country: None (occurrence: None)
  Receive Date: 20070920
  Receipt Date: 20070907
  Transmission Date: 20080115
  Serious: Yes (Hospitalization)
  Sender: FDA-Public Use
  Company Number: DE-GENENTECH-247348

PATIENT
  Sex: Female
  Weight: 62 kg

DRUGS (1)
  1. RITUXIMAB [Suspect]
     Indication: B-CELL LYMPHOMA
     Dosage: 375 MG/M2, Q8W
     Route: 042
     Dates: start: 20060911

REACTIONS (2)
  - HYPOAESTHESIA [None]
  - VISUAL FIELD DEFECT [None]
